FAERS Safety Report 9354345 (Version 1)
Quarter: 2013Q2

REPORT INFORMATION
  Report Type: Report from Study
  Country: US (occurrence: US)
  Receive Date: 20130618
  Receipt Date: 20130618
  Transmission Date: 20140414
  Serious: Yes (Disabling)
  Sender: FDA-Public Use
  Company Number: US-PFIZER INC-HQ6440526JAN2001

PATIENT
  Age: 59 Year
  Sex: Male
  Weight: 72.8 kg

DRUGS (6)
  1. TEMSIROLIMUS [Suspect]
     Indication: RENAL CELL CARCINOMA
     Dosage: 25 MG, WEEKLY
     Route: 042
     Dates: start: 20000712, end: 20001213
  2. FENTANYL [Concomitant]
     Dosage: UNK
     Route: 062
     Dates: start: 20001222
  3. PRINIVIL [Concomitant]
     Dosage: UNK
  4. PERCOCET [Concomitant]
     Dosage: UNK
     Route: 048
     Dates: start: 199910
  5. COMPAZINE [Concomitant]
     Dosage: UNK
     Route: 048
     Dates: start: 20001222
  6. SORBITOL [Concomitant]
     Dosage: UNK
     Route: 048
     Dates: start: 20001222

REACTIONS (2)
  - Pulmonary hypertension [Not Recovered/Not Resolved]
  - Right ventricular failure [Not Recovered/Not Resolved]
